FAERS Safety Report 19890826 (Version 3)
Quarter: 2022Q1

REPORT INFORMATION
  Report Type: Report from Study
  Country: TW (occurrence: TW)
  Receive Date: 20210928
  Receipt Date: 20220106
  Transmission Date: 20220423
  Serious: Yes (Life-Threatening, Hospitalization, Other)
  Sender: FDA-Public Use
  Company Number: TW-PFIZER INC-202101212837

PATIENT
  Sex: Female
  Weight: 42.8 kg

DRUGS (3)
  1. GEMTUZUMAB OZOGAMICIN [Suspect]
     Active Substance: GEMTUZUMAB OZOGAMICIN
     Indication: Acute myeloid leukaemia
     Dosage: 4.6 MG, ONCE X 3 DAYS
     Route: 042
     Dates: start: 20210625, end: 20210701
  2. VENCLEXTA [Concomitant]
     Active Substance: VENETOCLAX
     Indication: Acute myeloid leukaemia
     Dosage: 200 MG, QD
     Route: 048
     Dates: start: 20210612, end: 20210624
  3. RYDAPT [Concomitant]
     Active Substance: MIDOSTAURIN
     Indication: Systemic mastocytosis
     Dosage: 150 MG, Q12H
     Route: 048
     Dates: start: 20210617

REACTIONS (2)
  - Pancytopenia [Recovered/Resolved]
  - Bronchopulmonary aspergillosis [Recovered/Resolved]

NARRATIVE: CASE EVENT DATE: 20210101
